FAERS Safety Report 4874336-4 (Version None)
Quarter: 2005Q4

REPORT INFORMATION
  Report Type: 
  Country: None (occurrence: None)
  Receive Date: 20051201
  Receipt Date: 20050811
  Transmission Date: 20060501
  Serious: No
  Sender: FDA-Public Use
  Company Number: 2005PV001033

PATIENT
  Age: 41 Year
  Sex: Male
  Weight: 122.4712 kg

DRUGS (14)
  1. BYETTA [Suspect]
     Indication: DIABETES MELLITUS NON-INSULIN-DEPENDENT
     Dosage: 5 MCG; BID; SC
     Route: 058
     Dates: start: 20050729, end: 20050806
  2. GLUCOPHAGE [Concomitant]
  3. NOVOLOG MIX 70/30 [Concomitant]
  4. NOVOLOG MIX 70/30 [Concomitant]
  5. ALLOPURINOL [Concomitant]
  6. PROCARDIA [Concomitant]
  7. TRAMADOL HCL [Concomitant]
  8. FUROSEMIDE [Concomitant]
  9. VYTORIN [Concomitant]
  10. QUININE SULFATE [Concomitant]
  11. AMITRIPTYLINE HCL [Concomitant]
  12. POTASSIUM [Concomitant]
  13. LEVAQUIN [Concomitant]
  14. ASPIRIN [Concomitant]

REACTIONS (4)
  - CONSTIPATION [None]
  - DECREASED APPETITE [None]
  - FAECES HARD [None]
  - TREATMENT NONCOMPLIANCE [None]
